FAERS Safety Report 7956143-9 (Version None)
Quarter: 2011Q4

REPORT INFORMATION
  Report Type: 
  Country: None (occurrence: None)
  Receive Date: 20111205
  Receipt Date: 20111123
  Transmission Date: 20120403
  Serious: Yes (Other)
  Sender: FDA-Public Use
  Company Number: US-JNJFOC-20111111379

PATIENT
  Sex: Female
  Weight: 66.23 kg

DRUGS (4)
  1. REMICADE [Suspect]
     Route: 042
     Dates: start: 20050101
  2. REMICADE [Suspect]
     Indication: CROHN'S DISEASE
     Route: 042
     Dates: start: 20050101
  3. REMICADE [Suspect]
     Dosage: RECEIVED INFUSIONS ON AN AS NEEDED BASIS.
     Route: 042
     Dates: start: 20010101, end: 20050101
  4. REMICADE [Suspect]
     Indication: ARTHRITIS
     Dosage: RECEIVED INFUSIONS ON AN AS NEEDED BASIS.
     Route: 042
     Dates: start: 20010101, end: 20050101

REACTIONS (7)
  - DIARRHOEA [None]
  - ACTIVITIES OF DAILY LIVING IMPAIRED [None]
  - SYSTEMIC LUPUS ERYTHEMATOSUS [None]
  - MALAISE [None]
  - RASH [None]
  - DRUG INEFFECTIVE [None]
  - OEDEMA PERIPHERAL [None]
